FAERS Safety Report 23607220 (Version 1)
Quarter: 2024Q1

REPORT INFORMATION
  Report Type: Spontaneous
  Country: CN (occurrence: CN)
  Receive Date: 20240307
  Receipt Date: 20240307
  Transmission Date: 20240410
  Serious: Yes (Hospitalization)
  Sender: FDA-Public Use
  Company Number: CN-JNJFOC-20240302054

PATIENT
  Age: 11 Year
  Sex: Male
  Weight: 50 kg

DRUGS (4)
  1. CHILDRENS MOTRIN [Suspect]
     Active Substance: IBUPROFEN
     Indication: Antipyresis
     Route: 048
     Dates: start: 20240225, end: 20240225
  2. CHILDRENS MOTRIN [Suspect]
     Active Substance: IBUPROFEN
     Indication: Analgesic therapy
  3. CHILDRENS MOTRIN [Suspect]
     Active Substance: IBUPROFEN
     Indication: Abdominal pain
  4. CHILDRENS MOTRIN [Suspect]
     Active Substance: IBUPROFEN
     Indication: Vomiting

REACTIONS (4)
  - Oropharyngeal discomfort [Recovered/Resolved]
  - Eyelid oedema [Recovered/Resolved]
  - Lip oedema [Recovered/Resolved]
  - Eyelids pruritus [Recovered/Resolved]

NARRATIVE: CASE EVENT DATE: 20240225
